FAERS Safety Report 10953230 (Version 5)
Quarter: 2016Q3

REPORT INFORMATION
  Report Type: Spontaneous
  Country: JP (occurrence: JP)
  Receive Date: 20150325
  Receipt Date: 20160907
  Transmission Date: 20161109
  Serious: Yes (Life-Threatening, Hospitalization, Other)
  Sender: FDA-Public Use
  Company Number: JP-SA-2015SA035905

PATIENT
  Age: 64 Year
  Sex: Female
  Weight: 77.2 kg

DRUGS (11)
  1. OLMESARTAN [Suspect]
     Active Substance: OLMESARTAN
     Indication: HYPERTENSION
     Route: 065
  2. CEFTRIAXONE. [Concomitant]
     Active Substance: CEFTRIAXONE
  3. METFORMIN [Suspect]
     Active Substance: METFORMIN HYDROCHLORIDE
     Indication: TYPE 2 DIABETES MELLITUS
     Route: 048
  4. GLIMEPIRIDE. [Suspect]
     Active Substance: GLIMEPIRIDE
     Indication: TYPE 2 DIABETES MELLITUS
     Route: 048
  5. TOCOPHEROL [Concomitant]
     Active Substance: TOCOPHEROL
  6. VOGLIBOSE [Suspect]
     Active Substance: VOGLIBOSE
     Indication: TYPE 2 DIABETES MELLITUS
     Route: 048
  7. AMLODIPINE [Concomitant]
     Active Substance: AMLODIPINE BESYLATE
  8. POLAPREZINC [Concomitant]
     Active Substance: POLAPREZINC
  9. CANDESARTAN CILEXETIL. [Suspect]
     Active Substance: CANDESARTAN CILEXETIL
     Indication: HYPERTENSION
     Route: 065
  10. EXENATIDE [Concomitant]
     Active Substance: EXENATIDE
     Indication: DIABETES MELLITUS
  11. ROSUVASTATIN. [Concomitant]
     Active Substance: ROSUVASTATIN

REACTIONS (23)
  - Blood pH decreased [Recovered/Resolved]
  - Blood bicarbonate decreased [Recovered/Resolved]
  - Oedema peripheral [Recovered/Resolved]
  - Blood creatinine increased [Recovered/Resolved]
  - Metabolic acidosis [Recovered/Resolved]
  - Decreased appetite [Recovered/Resolved]
  - Costovertebral angle tenderness [Recovered/Resolved]
  - Blood uric acid increased [Recovered/Resolved]
  - Condition aggravated [Recovering/Resolving]
  - Lactic acidosis [Recovered/Resolved]
  - Acute kidney injury [Recovered/Resolved]
  - Blood urea increased [Recovered/Resolved]
  - Blood lactic acid increased [Recovered/Resolved]
  - Fatigue [Recovered/Resolved]
  - Base excess decreased [Recovered/Resolved]
  - Dehydration [Recovering/Resolving]
  - Renal impairment [Recovering/Resolving]
  - Drug level increased [Recovered/Resolved]
  - Anion gap increased [Recovered/Resolved]
  - PO2 decreased [Recovered/Resolved]
  - C-reactive protein increased [Recovered/Resolved]
  - Peripheral circulatory failure [Recovering/Resolving]
  - Hypoglycaemia [Recovering/Resolving]
